FAERS Safety Report 8988872 (Version 1)
Quarter: 2012Q4

REPORT INFORMATION
  Report Type: Spontaneous
  Country: US (occurrence: None)
  Receive Date: 20121224
  Receipt Date: 20121224
  Transmission Date: 20130627
  Serious: Yes (Death)
  Sender: FDA-Public Use
  Company Number: None

PATIENT
  Age: 61 Year
  Sex: Female
  Weight: 45.67 kg

DRUGS (8)
  1. DECITABINE [Suspect]
     Indication: MDS
     Dosage: 20.2mg 2x/wk subq inj
     Dates: start: 20120809, end: 20120831
  2. CIPRO [Concomitant]
  3. XANAX [Concomitant]
  4. NORVASC [Concomitant]
  5. ZOLPIDEM [Concomitant]
  6. ZYRTEC [Concomitant]
  7. PRILOSEC [Concomitant]
  8. ULTRAM [Concomitant]

REACTIONS (3)
  - Febrile neutropenia [None]
  - Mouth ulceration [None]
  - Medication overuse headache [None]
